FAERS Safety Report 12277537 (Version 1)
Quarter: 2016Q2

REPORT INFORMATION
  Report Type: Report from Study
  Country: AU (occurrence: AU)
  Receive Date: 20160418
  Receipt Date: 20160418
  Transmission Date: 20160815
  Serious: Yes (Other)
  Sender: FDA-Public Use
  Company Number: AU-FOOD AND DRUG ADMINISTRATION-KAD201601-000291

PATIENT
  Age: 61 Year
  Sex: Female
  Weight: 54 kg

DRUGS (3)
  1. TIMOLOL. [Concomitant]
     Active Substance: TIMOLOL
     Indication: GLAUCOMA
     Dosage: EYE DROPS, SOLUTION
     Route: 047
     Dates: start: 2014
  2. VIEKIRA PAK [Suspect]
     Active Substance: DASABUVIR\OMBITASVIR\PARITAPREVIR\RITONAVIR
     Indication: HEPATITIS C
     Dosage: TABLET, AV1 X 2 IN THE MORNING, AV2 X 1 AT NIGHT
     Route: 048
     Dates: start: 20151214
  3. RIBAVIRIN. [Suspect]
     Active Substance: RIBAVIRIN
     Indication: HEPATITIS C
     Dosage: TABLET, 200 MG X 3 IN AM, X 2 IN PM
     Route: 048
     Dates: start: 20151214

REACTIONS (6)
  - Haemolytic anaemia [Recovered/Resolved]
  - Haemoglobin decreased [Unknown]
  - Asthenia [Recovered/Resolved]
  - Jaundice [Unknown]
  - Blood bilirubin increased [Recovered/Resolved]
  - Headache [Recovered/Resolved]

NARRATIVE: CASE EVENT DATE: 20151221
